FAERS Safety Report 5202852-4 (Version None)
Quarter: 2006Q4

REPORT INFORMATION
  Report Type: 
  Country: None (occurrence: None)
  Receive Date: 20061016
  Receipt Date: 20060913
  Transmission Date: 20070319
  Serious: No
  Sender: FDA-Public Use
  Company Number: 2006SP003284

PATIENT
  Age: 43 Year
  Sex: Female
  Weight: 78.0187 kg

DRUGS (13)
  1. LUNESTA [Suspect]
     Indication: INSOMNIA
     Dosage: 3 MG 1X ORAL
     Route: 048
     Dates: start: 20060801, end: 20060801
  2. PROPACET 100 [Concomitant]
  3. SKELAXIN [Concomitant]
  4. CELEXA [Concomitant]
  5. SYNTHROID [Concomitant]
  6. ULTRAM [Concomitant]
  7. FLEXERIL [Concomitant]
  8. NEXIUM [Concomitant]
  9. ESTROGENS [Concomitant]
  10. AXERT [Concomitant]
  11. CEPHALEXIN MONOHYDRATE [Concomitant]
  12. NASONEX [Concomitant]
  13. MIRTAZAPINE [Concomitant]

REACTIONS (1)
  - DYSGEUSIA [None]
